FAERS Safety Report 4333464-2 (Version None)
Quarter: 2004Q1

REPORT INFORMATION
  Report Type: 
  Country: None (occurrence: None)
  Receive Date: 20040329
  Receipt Date: 20040212
  Transmission Date: 20041129
  Serious: No
  Sender: FDA-Public Use
  Company Number: 04P-163-0250063-00

PATIENT
  Age: 59 Year
  Sex: Female
  Weight: 63.5036 kg

DRUGS (11)
  1. HUMIRA [Suspect]
     Indication: RHEUMATOID ARTHRITIS
     Dosage: 40 MG, 1 IN 2 WK, SUBCUTANEOUS
     Route: 058
     Dates: start: 20040211
  2. PREDNISONE [Concomitant]
  3. HYDROCHLOROTHIAZIDE [Concomitant]
  4. VENLAFAXINE HCL [Concomitant]
  5. TRAZODONE HCL [Concomitant]
  6. CONJUGATED ESTROGEN [Concomitant]
  7. OMEPRAZOLE [Concomitant]
  8. METHOTREXATE [Concomitant]
  9. FOLIC ACID [Concomitant]
  10. PSEUDOEPHEDRINE HYDROCHLORIDE [Concomitant]
  11. MULTI-VITAMINS [Concomitant]

REACTIONS (3)
  - DIZZINESS [None]
  - FEELING COLD [None]
  - NAUSEA [None]
